FAERS Safety Report 4356956-9 (Version None)
Quarter: 2004Q2

REPORT INFORMATION
  Report Type: 
  Country: None (occurrence: None)
  Receive Date: 20040507
  Receipt Date: 20040415
  Transmission Date: 20050107
  Serious: Yes (Hospitalization)
  Sender: FDA-Public Use
  Company Number: BDI-006055

PATIENT
  Age: 15 Year
  Sex: Female

DRUGS (1)
  1. ISOVUE-370 [Suspect]
     Indication: ABDOMEN SCAN
     Dosage: 100 ML ONCE IV
     Route: 042
     Dates: start: 20040414, end: 20040414

REACTIONS (8)
  - COMPARTMENT SYNDROME [None]
  - EXTRAVASATION [None]
  - HYPERSENSITIVITY [None]
  - HYPOAESTHESIA [None]
  - INJECTION SITE VESICLES [None]
  - OEDEMA PERIPHERAL [None]
  - SCAR [None]
  - WOUND [None]
